FAERS Safety Report 22774044 (Version 4)
Quarter: 2024Q1

REPORT INFORMATION
  Report Type: Spontaneous
  Country: GB (occurrence: GB)
  Receive Date: 20230801
  Receipt Date: 20240119
  Transmission Date: 20240409
  Serious: Yes (Death, Life-Threatening, Hospitalization, Disabling, Other)
  Sender: FDA-Public Use
  Company Number: GB-BIOGEN-2023BI01218367

PATIENT
  Age: 44 Year
  Sex: Female

DRUGS (4)
  1. TYSABRI [Suspect]
     Active Substance: NATALIZUMAB
     Indication: Multiple sclerosis
     Route: 050
     Dates: start: 20130101
  2. TYSABRI [Suspect]
     Active Substance: NATALIZUMAB
     Dosage: HAS BEEN ON TYSABRI FOR 9 YEARS
     Route: 050
     Dates: start: 2014
  3. TYSABRI [Suspect]
     Active Substance: NATALIZUMAB
     Route: 050
     Dates: end: 20230408
  4. TYSABRI [Suspect]
     Active Substance: NATALIZUMAB
     Dosage: ON EXTENDED INTERVAL DOSING
     Route: 050
     Dates: end: 202307

REACTIONS (4)
  - Progressive multifocal leukoencephalopathy [Fatal]
  - Immune reconstitution inflammatory syndrome [Fatal]
  - Multiple sclerosis [Not Recovered/Not Resolved]
  - Prescribed underdose [Unknown]

NARRATIVE: CASE EVENT DATE: 20230331
